FAERS Safety Report 18372726 (Version 2)
Quarter: 2021Q3

REPORT INFORMATION
  Report Type: Spontaneous
  Country: US (occurrence: US)
  Receive Date: 20201012
  Receipt Date: 20210714
  Transmission Date: 20211014
  Serious: Yes (Other)
  Sender: FDA-Public Use
  Company Number: US-SA-2020SA279397

PATIENT
  Age: 88 Year
  Sex: Male

DRUGS (1)
  1. ZANTAC [Suspect]
     Active Substance: RANITIDINE HYDROCHLORIDE
     Indication: DYSPEPSIA
     Dosage: UNK, QD
     Dates: start: 199601, end: 201512

REACTIONS (3)
  - Oesophageal carcinoma [Unknown]
  - Bladder cancer [Unknown]
  - Throat cancer [Unknown]

NARRATIVE: CASE EVENT DATE: 20160601
